FAERS Safety Report 12528863 (Version 3)
Quarter: 2016Q4

REPORT INFORMATION
  Report Type: Spontaneous
  Country: JP (occurrence: JP)
  Receive Date: 20160705
  Receipt Date: 20161013
  Transmission Date: 20170207
  Serious: Yes (Death)
  Sender: FDA-Public Use
  Company Number: JP-SA-2016SA121368

PATIENT
  Age: 74 Year
  Sex: Male
  Weight: 47 kg

DRUGS (9)
  1. ALOXI [Concomitant]
     Active Substance: PALONOSETRON HYDROCHLORIDE
     Route: 065
     Dates: start: 20160525, end: 20160525
  2. PREDOPA [Concomitant]
     Active Substance: DOPAMINE\DOPAMINE HYDROCHLORIDE
     Route: 065
     Dates: start: 20160611, end: 20160612
  3. ELPLAT [Suspect]
     Active Substance: OXALIPLATIN
     Indication: GASTRIC CANCER
     Route: 041
     Dates: start: 20160525, end: 20160525
  4. DEXART [Concomitant]
     Active Substance: DEXAMETHASONE SODIUM PHOSPHATE
     Route: 065
     Dates: start: 20160525, end: 20160525
  5. ZOSYN [Concomitant]
     Active Substance: PIPERACILLIN SODIUM\TAZOBACTAM SODIUM
     Route: 065
     Dates: start: 20160611, end: 20160611
  6. MAXIPIME [Concomitant]
     Active Substance: CEFEPIME HYDROCHLORIDE
     Route: 065
     Dates: start: 20160611, end: 20160612
  7. TS-1 [Suspect]
     Active Substance: GIMERACIL\OTERACIL\TEGAFUR
     Indication: GASTRIC CANCER
     Route: 048
     Dates: start: 20160525, end: 20160607
  8. RECOMODULIN [Concomitant]
     Active Substance: THROMBOMODULIN ALFA
     Route: 065
     Dates: start: 20160611, end: 20160612
  9. ANAEMETRO [Concomitant]
     Active Substance: METRONIDAZOLE
     Route: 065
     Dates: start: 20160611, end: 20160612

REACTIONS (4)
  - Septic shock [Fatal]
  - White blood cell count decreased [Fatal]
  - Anaemia [Fatal]
  - Febrile neutropenia [Fatal]

NARRATIVE: CASE EVENT DATE: 20160611
